FAERS Safety Report 4866694-1 (Version None)
Quarter: 2005Q4

REPORT INFORMATION
  Report Type: 
  Country: None (occurrence: None)
  Receive Date: 20051227
  Receipt Date: 20050429
  Transmission Date: 20060501
  Serious: Yes (Other)
  Sender: FDA-Public Use
  Company Number: GB-BRISTOL-MYERS SQUIBB COMPANY-12952446

PATIENT
  Sex: Male
  Weight: 2 kg

DRUGS (5)
  1. REYATAZ [Suspect]
     Indication: HIV INFECTION
     Route: 064
     Dates: start: 20040806
  2. RITONAVIR [Suspect]
     Indication: HIV INFECTION
     Dosage: ONGOING AT CONCEPTION.
     Route: 064
     Dates: start: 20040806
  3. VIREAD [Suspect]
     Indication: HIV INFECTION
     Route: 064
     Dates: start: 20040806
  4. EMTRIVA [Suspect]
     Indication: HIV INFECTION
     Route: 064
     Dates: start: 20040806
  5. PROTHIADEN [Suspect]
     Dosage: 75 MG TWICE DAILY FROM MAR-2005.
     Route: 064
     Dates: start: 20040915

REACTIONS (2)
  - PERICARDIAL EFFUSION [None]
  - PREGNANCY [None]
